FAERS Safety Report 15588880 (Version 5)
Quarter: 2018Q4

REPORT INFORMATION
  Report Type: Spontaneous
  Country: IT (occurrence: IT)
  Receive Date: 20181106
  Receipt Date: 20181213
  Transmission Date: 20190205
  Serious: Yes (Other)
  Sender: FDA-Public Use
  Company Number: IT-BIOGEN-2018BI00653837

PATIENT
  Age: 27 Year
  Sex: Male

DRUGS (2)
  1. SALBUTAMOL [Concomitant]
     Active Substance: ALBUTEROL
     Indication: PRODUCT USED FOR UNKNOWN INDICATION
     Route: 065
  2. SPINRAZA [Suspect]
     Active Substance: NUSINERSEN
     Indication: SPINAL MUSCULAR ATROPHY
     Route: 065
     Dates: start: 20181019, end: 20181019

REACTIONS (4)
  - VIth nerve paralysis [Unknown]
  - Blood creatine phosphokinase increased [Unknown]
  - Extraocular muscle disorder [Unknown]
  - Intracranial hypotension [Unknown]

NARRATIVE: CASE EVENT DATE: 20181026
